FAERS Safety Report 13261530 (Version 6)
Quarter: 2018Q2

REPORT INFORMATION
  Report Type: Report from Study
  Country: US (occurrence: US)
  Receive Date: 20170222
  Receipt Date: 20180430
  Transmission Date: 20180711
  Serious: Yes (Hospitalization, Other)
  Sender: FDA-Public Use
  Company Number: US-BRISTOL-MYERS SQUIBB COMPANY-BMS-2016-105598

PATIENT
  Age: 66 Year
  Sex: Male

DRUGS (5)
  1. NIVOLUMAB [Suspect]
     Active Substance: NIVOLUMAB
     Indication: LUNG ADENOCARCINOMA
     Route: 065
  2. IBUPROFEN. [Concomitant]
     Active Substance: IBUPROFEN
     Indication: PRODUCT USED FOR UNKNOWN INDICATION
     Route: 065
  3. NIVOLUMAB [Suspect]
     Active Substance: NIVOLUMAB
     Indication: NON-SMALL CELL LUNG CANCER
     Dosage: UNK UNK, Q2WK
     Route: 042
     Dates: start: 20161120
  4. BABY ASPIRIN [Concomitant]
     Active Substance: ASPIRIN
     Indication: PRODUCT USED FOR UNKNOWN INDICATION
     Route: 065
  5. IPILIMUMAB [Suspect]
     Active Substance: IPILIMUMAB
     Indication: MALIGNANT MELANOMA
     Route: 065

REACTIONS (21)
  - Pruritus [Not Recovered/Not Resolved]
  - Malignant pleural effusion [Unknown]
  - Emphysema [Not Recovered/Not Resolved]
  - Pseudomonas infection [Recovered/Resolved]
  - Dyspnoea [Unknown]
  - Increased appetite [Unknown]
  - Asthenia [Unknown]
  - Red blood cell count decreased [Unknown]
  - Paraesthesia [Not Recovered/Not Resolved]
  - Infection [Not Recovered/Not Resolved]
  - Haemoptysis [Unknown]
  - Back pain [Unknown]
  - Sinus disorder [Not Recovered/Not Resolved]
  - Productive cough [Not Recovered/Not Resolved]
  - Chest pain [Recovering/Resolving]
  - Blood thyroid stimulating hormone increased [Unknown]
  - Myocardial infarction [Recovering/Resolving]
  - Respiratory failure [Unknown]
  - Chest discomfort [Unknown]
  - Decreased activity [Unknown]
  - Hypothyroidism [Unknown]

NARRATIVE: CASE EVENT DATE: 201702
